FAERS Safety Report 25990848 (Version 1)
Quarter: 2025Q4

REPORT INFORMATION
  Report Type: Spontaneous
  Country: US (occurrence: None)
  Receive Date: 20251031
  Receipt Date: 20251031
  Transmission Date: 20260117
  Serious: Yes (Death)
  Sender: FDA-CTU
  Company Number: None

PATIENT
  Age: 78 Year
  Sex: Male

DRUGS (1)
  1. NUZYRA [Suspect]
     Active Substance: OMADACYCLINE
     Dosage: 300 MG DAILY ORAL
     Route: 048
     Dates: start: 20250328, end: 20251031

REACTIONS (1)
  - Renal failure [None]

NARRATIVE: CASE EVENT DATE: 20251015
